FAERS Safety Report 12672546 (Version 1)
Quarter: 2016Q3

REPORT INFORMATION
  Report Type: Spontaneous
  Country: US (occurrence: US)
  Receive Date: 20160822
  Receipt Date: 20160822
  Transmission Date: 20161109
  Serious: No
  Sender: FDA-Public Use
  Company Number: US-JNJFOC-20160815384

PATIENT
  Age: 45 Year
  Sex: Female
  Weight: 61.24 kg

DRUGS (6)
  1. INTRAUTERINE CONTRACEPTIVE DEVICE [Concomitant]
     Active Substance: COPPER
     Indication: CONTRACEPTION
     Route: 065
  2. WOMENS ROGAINE UNSCENTED [Suspect]
     Active Substance: MINOXIDIL
     Route: 061
  3. VITAMINS NOS [Concomitant]
     Active Substance: VITAMINS
     Indication: NUTRITIONAL SUPPLEMENTATION
     Route: 065
  4. WOMENS ROGAINE UNSCENTED [Suspect]
     Active Substance: MINOXIDIL
     Indication: ALOPECIA
     Dosage: 1/2 CAP
     Route: 061
     Dates: start: 201501
  5. TEA TREE OIL. [Concomitant]
     Active Substance: TEA TREE OIL
     Indication: SUNBURN
     Route: 065
  6. TEA TREE OIL. [Concomitant]
     Active Substance: TEA TREE OIL
     Indication: DRY SKIN
     Route: 065

REACTIONS (7)
  - Application site pain [Recovered/Resolved]
  - Product formulation issue [Unknown]
  - Product use issue [Recovered/Resolved]
  - Product quality issue [Unknown]
  - Application site erythema [Recovered/Resolved]
  - Off label use [Recovered/Resolved]
  - Contraindication to medical treatment [Recovered/Resolved]
